FAERS Safety Report 4345858-X (Version None)
Quarter: 2004Q2

REPORT INFORMATION
  Report Type: 
  Country: None (occurrence: None)
  Receive Date: 20040423
  Receipt Date: 20040423
  Transmission Date: 20050107
  Serious: Yes (Other)
  Sender: FDA-Public Use
  Company Number: None

PATIENT
  Age: 42 Year
  Sex: Male
  Weight: 64.1 kg

DRUGS (1)
  1. GAMMAR [Suspect]
     Indication: HYPOGAMMAGLOBULINAEMIA
     Dosage: 20 GM Q MONTH IV
     Route: 042
     Dates: start: 20040422

REACTIONS (3)
  - EAR DISCOMFORT [None]
  - RASH ERYTHEMATOUS [None]
  - RASH PRURITIC [None]
